FAERS Safety Report 10421017 (Version 1)
Quarter: 2014Q3

REPORT INFORMATION
  Report Type: Spontaneous
  Country: DK (occurrence: None)
  Receive Date: 20140828
  Receipt Date: 20140828
  Transmission Date: 20150326
  Serious: Yes (Other)
  Sender: FDA-Public Use
  Company Number: AUR-APL-2014-08952

PATIENT
  Sex: Male

DRUGS (2)
  1. AMITRIPTYLINE (AMITRIPTYLINE) [Suspect]
     Active Substance: AMITRIPTYLINE
     Indication: NEUROLOGICAL INFECTION
     Dates: start: 20110506, end: 20110802
  2. GABAPENTIN 300 MG [Suspect]
     Active Substance: GABAPENTIN
     Indication: ARTHRALGIA
     Dates: start: 20110513, end: 20110530

REACTIONS (8)
  - Parosmia [None]
  - Weight increased [None]
  - Blindness [None]
  - Visual impairment [None]
  - Cataract [None]
  - Retinal depigmentation [None]
  - Sarcoma [None]
  - Dysgeusia [None]

NARRATIVE: CASE EVENT DATE: 2011
